FAERS Safety Report 12538198 (Version 1)
Quarter: 2016Q3

REPORT INFORMATION
  Report Type: Spontaneous
  Country: US (occurrence: US)
  Receive Date: 20160707
  Receipt Date: 20160707
  Transmission Date: 20161109
  Serious: No
  Sender: FDA-Public Use
  Company Number: US-ASTRAZENECA-2016SE70324

PATIENT
  Sex: Male
  Weight: 88.5 kg

DRUGS (3)
  1. OXYCOTIN XR [Concomitant]
     Indication: PAIN
     Dosage: 30.0MG UNKNOWN
     Route: 065
  2. OXYCODON [Concomitant]
     Active Substance: OXYCODONE
     Indication: PAIN
     Dosage: 10.0MG UNKNOWN
     Route: 065
  3. MOVANTIK [Suspect]
     Active Substance: NALOXEGOL OXALATE
     Indication: CONSTIPATION
     Route: 048
     Dates: start: 20160623

REACTIONS (5)
  - Abdominal pain upper [Recovering/Resolving]
  - Adverse reaction [Recovered/Resolved]
  - Vomiting [Recovered/Resolved]
  - Nausea [Recovering/Resolving]
  - Diarrhoea [Recovered/Resolved]
